FAERS Safety Report 4624176-6 (Version None)
Quarter: 2005Q1

REPORT INFORMATION
  Report Type: 
  Country: None (occurrence: None)
  Receive Date: 20050331
  Receipt Date: 20050323
  Transmission Date: 20050727
  Serious: Yes (Other)
  Sender: FDA-Public Use
  Company Number: GB-GLAXOSMITHKLINE-B0375706A

PATIENT
  Age: 25 Year
  Sex: Male

DRUGS (4)
  1. LAMICTAL [Suspect]
     Dosage: 200MG TWICE PER DAY
     Route: 048
  2. VALPROATE SODIUM [Concomitant]
     Dosage: 500MG THREE TIMES PER DAY
     Route: 065
  3. CLOPIXOL [Concomitant]
     Dosage: 34MG PER DAY
     Route: 065
  4. PROCYCLIDINE HYDROCHLORIDE 2MG TAB [Concomitant]
     Dosage: 5MG TWICE PER DAY
     Route: 065

REACTIONS (3)
  - AGGRESSION [None]
  - AGITATION [None]
  - NON-CONSUMMATION [None]
